FAERS Safety Report 24687411 (Version 2)
Quarter: 2025Q1

REPORT INFORMATION
  Report Type: Report from Study
  Country: AU (occurrence: AU)
  Receive Date: 20241202
  Receipt Date: 20250103
  Transmission Date: 20250409
  Serious: Yes (Hospitalization, Other)
  Sender: PHARMING GROUP
  Company Number: AU-PHARMING-PHAAU2024000861

PATIENT

DRUGS (3)
  1. LENIOLISIB PHOSPHATE [Suspect]
     Active Substance: LENIOLISIB PHOSPHATE
     Indication: Activated PI3 kinase delta syndrome
     Dosage: 70 MILLIGRAM, BID
     Route: 048
     Dates: start: 20231120, end: 20240601
  2. LENIOLISIB PHOSPHATE [Suspect]
     Active Substance: LENIOLISIB PHOSPHATE
     Dosage: 70 MILLIGRAM, BID
     Route: 048
     Dates: start: 2024
  3. SIROLIMUS [Concomitant]
     Active Substance: SIROLIMUS
     Indication: Activated PI3 kinase delta syndrome
     Route: 048
     Dates: start: 20240918, end: 20241115

REACTIONS (3)
  - Neutropenic sepsis [Recovered/Resolved]
  - Diffuse alopecia [Recovered/Resolved]
  - Condition aggravated [Unknown]

NARRATIVE: CASE EVENT DATE: 20240115
